FAERS Safety Report 6793337-2 (Version None)
Quarter: 2010Q2

REPORT INFORMATION
  Report Type: 
  Country: None (occurrence: None)
  Receive Date: 20100624
  Receipt Date: 20100209
  Transmission Date: 20101027
  Serious: Yes (Other)
  Sender: FDA-Public Use
  Company Number: US-MYLANLABS-2009S1021062

PATIENT
  Age: 40 Year
  Sex: Female

DRUGS (3)
  1. CLOZAPINE [Suspect]
     Indication: MANIA
     Route: 048
     Dates: end: 20091130
  2. KLONOPIN [Concomitant]
     Indication: AGITATION
     Route: 048
  3. RISPERDAL [Concomitant]
     Route: 048

REACTIONS (1)
  - GRANULOCYTOPENIA [None]
